FAERS Safety Report 8111380-8 (Version None)
Quarter: 2012Q1

REPORT INFORMATION
  Report Type: 
  Country: None (occurrence: None)
  Receive Date: 20120203
  Receipt Date: 20111020
  Transmission Date: 20120608
  Serious: No
  Sender: FDA-Public Use
  Company Number: US-GLAXOSMITHKLINE-A0949893A

PATIENT
  Age: 49 Year
  Sex: Male

DRUGS (8)
  1. WELLBUTRIN [Concomitant]
  2. ENBREL [Concomitant]
  3. RISPERIDONE [Concomitant]
  4. DURAGESIC-100 [Concomitant]
  5. XANAX [Concomitant]
  6. TOPICAL STEROIDS [Concomitant]
  7. LAMICTAL [Suspect]
     Indication: BIPOLAR DISORDER
     Route: 048
     Dates: start: 20110501
  8. NEXIUM [Concomitant]

REACTIONS (2)
  - RASH PUSTULAR [None]
  - RASH PRURITIC [None]
